FAERS Safety Report 21225415 (Version 2)
Quarter: 2022Q4

REPORT INFORMATION
  Report Type: Spontaneous
  Country: ES (occurrence: ES)
  Receive Date: 20220818
  Receipt Date: 20221102
  Transmission Date: 20230113
  Serious: Yes (Other)
  Sender: FDA-Public Use
  Company Number: ES-AMGEN-ESPSP2022138074

PATIENT

DRUGS (9)
  1. PROLIA [Suspect]
     Active Substance: DENOSUMAB
     Indication: Osteopenia
     Dosage: UNK
     Route: 065
  2. PROLIA [Suspect]
     Active Substance: DENOSUMAB
     Indication: Osteoporosis
  3. PREDNISONE [Concomitant]
     Active Substance: PREDNISONE
  4. TACROLIMUS [Concomitant]
     Active Substance: TACROLIMUS
  5. EVEROLIMUS [Concomitant]
     Active Substance: EVEROLIMUS
  6. FUROSEMIDE [Concomitant]
     Active Substance: FUROSEMIDE
  7. LEVETIRACETAM [Concomitant]
     Active Substance: LEVETIRACETAM
  8. PREGABALIN [Concomitant]
     Active Substance: PREGABALIN
  9. GABAPENTIN [Concomitant]
     Active Substance: GABAPENTIN

REACTIONS (2)
  - Chronic kidney disease [Unknown]
  - Traumatic fracture [Unknown]
